FAERS Safety Report 7213589-4 (Version None)
Quarter: 2011Q1

REPORT INFORMATION
  Report Type: 
  Country: None (occurrence: None)
  Receive Date: 20110106
  Receipt Date: 20101226
  Transmission Date: 20110831
  Serious: No
  Sender: FDA-Public Use
  Company Number: US-B.I. PHARMACEUTICALS,INC./RIDGEFIELD-2011-BP-00125BP

PATIENT
  Sex: Female

DRUGS (8)
  1. METOPROLOL [Concomitant]
     Dosage: 100 MG
     Route: 048
  2. ARACEPT [Concomitant]
     Dosage: 10 MG
     Route: 048
  3. DIGOXIN [Concomitant]
     Route: 048
  4. FISH OIL [Concomitant]
     Indication: ROUTINE HEALTH MAINTENANCE
  5. METFORMIN HCL [Concomitant]
     Dosage: 500 MG
     Route: 048
  6. CITRACAL [Concomitant]
     Indication: ROUTINE HEALTH MAINTENANCE
     Route: 048
  7. PRADAXA [Suspect]
     Dosage: 300 MG
     Route: 048
     Dates: start: 20101206
  8. MULTI-VITAMIN [Concomitant]
     Indication: ROUTINE HEALTH MAINTENANCE

REACTIONS (3)
  - SWELLING FACE [None]
  - EYE SWELLING [None]
  - EYELID OEDEMA [None]
